FAERS Safety Report 5994308-6 (Version None)
Quarter: 2008Q4

REPORT INFORMATION
  Report Type: 
  Country: None (occurrence: None)
  Receive Date: 20081209
  Receipt Date: 20081110
  Transmission Date: 20090506
  Serious: No
  Sender: FDA-Public Use
  Company Number: 002#2#2008-00714

PATIENT
  Age: 70 Year
  Sex: Female
  Weight: 70.3075 kg

DRUGS (6)
  1. NEUPRO [Suspect]
     Indication: PARKINSON'S DISEASE
     Dosage: 4MG/24H,1 IN 1 D,TRANSDERMAL
     Route: 062
     Dates: start: 20061101
  2. SINEMET [Concomitant]
  3. ARICEPT [Concomitant]
  4. NAMENDA [Concomitant]
  5. CYMBALTA [Concomitant]
  6. ZOCOR [Concomitant]

REACTIONS (2)
  - FALL [None]
  - NIGHT SWEATS [None]
